FAERS Safety Report 7902655-3 (Version None)
Quarter: 2011Q4

REPORT INFORMATION
  Report Type: 
  Country: None (occurrence: None)
  Receive Date: 20111108
  Receipt Date: 20111017
  Transmission Date: 20120403
  Serious: Yes (Other)
  Sender: FDA-Public Use
  Company Number: PHFR2011GB03925

PATIENT
  Sex: Male

DRUGS (4)
  1. DULOXETIME HYDROCHLORIDE [Concomitant]
     Indication: SCHIZOPHRENIA
     Dosage: 60 MG/DAY
     Route: 048
  2. LANSOPRAZOLE [Concomitant]
     Indication: REFLUX GASTRITIS
     Dosage: 30 MG/DAY
     Route: 048
  3. AMISULPRIDE [Suspect]
     Indication: SCHIZOPHRENIA
     Dosage: 600 MG/DAY
     Route: 048
  4. CLOZARIL [Suspect]
     Indication: SCHIZOPHRENIA
     Dosage: 350 MG/DAY
     Route: 048
     Dates: start: 20060720

REACTIONS (2)
  - EOSINOPHIL COUNT INCREASED [None]
  - CHRONIC OBSTRUCTIVE PULMONARY DISEASE [None]
